FAERS Safety Report 7297639-5 (Version None)
Quarter: 2011Q1

REPORT INFORMATION
  Report Type: 
  Country: None (occurrence: None)
  Receive Date: 20110216
  Receipt Date: 20110209
  Transmission Date: 20110831
  Serious: Yes (Hospitalization)
  Sender: FDA-Public Use
  Company Number: TR-GILEAD-2011-0036248

PATIENT
  Sex: Male

DRUGS (1)
  1. VIREAD [Suspect]
     Indication: HEPATIC CIRRHOSIS

REACTIONS (2)
  - HAEMOGLOBIN DECREASED [None]
  - GLOMERULAR FILTRATION RATE DECREASED [None]
